FAERS Safety Report 5671058-7 (Version None)
Quarter: 2008Q1

REPORT INFORMATION
  Report Type: 
  Country: None (occurrence: None)
  Receive Date: 20080318
  Receipt Date: 20080313
  Transmission Date: 20080703
  Serious: Yes (Other)
  Sender: FDA-Public Use
  Company Number: NL-ASTRAZENECA-2008AC00678

PATIENT
  Age: 7545 Day
  Sex: Male
  Weight: 87 kg

DRUGS (5)
  1. SEROQUEL [Suspect]
     Indication: PSYCHOTIC DISORDER
     Route: 048
     Dates: start: 20080104, end: 20080108
  2. SEROQUEL [Suspect]
     Route: 048
     Dates: start: 20080108, end: 20080110
  3. SEROQUEL [Suspect]
     Route: 048
     Dates: start: 20080110, end: 20080114
  4. TEMAZEPAM [Concomitant]
     Indication: SEDATION
  5. DIPIPERON [Concomitant]
     Indication: SEDATION

REACTIONS (3)
  - ERYTHEMA [None]
  - HYPERSENSITIVITY [None]
  - RASH [None]
